FAERS Safety Report 7657176-2 (Version None)
Quarter: 2011Q3

REPORT INFORMATION
  Report Type: 
  Country: None (occurrence: None)
  Receive Date: 20110804
  Receipt Date: 20110729
  Transmission Date: 20111222
  Serious: Yes (Hospitalization)
  Sender: FDA-Public Use
  Company Number: FR-BAYER-2011-067393

PATIENT
  Age: 53 Year
  Sex: Male

DRUGS (23)
  1. PHLOROGLUCINOL [Concomitant]
     Dosage: 160 MG, TID
     Dates: start: 20110209, end: 20110407
  2. SIMVASTATIN [Concomitant]
     Dosage: 20 MG, QD
     Dates: start: 20110208
  3. ASPIRIN [Concomitant]
     Dosage: 75 MG, QD (DRINKABLE SOLUTION IN SINGLE-DOSE SACHET)
     Dates: start: 20110218, end: 20110523
  4. DARUNAVIR [Concomitant]
     Dosage: 400 MG, BID
     Dates: start: 20110304
  5. ZENTEL [Concomitant]
     Indication: INFECTION PARASITIC
     Dosage: UNK
     Dates: start: 20110331
  6. VIDEX [Concomitant]
     Dosage: 1 CAPSULE/D
     Dates: start: 20110412
  7. BACTRIM [Suspect]
     Dosage: 1 DF, QD
     Route: 048
     Dates: start: 20110201, end: 20110407
  8. ZIAGEN [Suspect]
     Dosage: 1 DF, UNK
     Route: 048
     Dates: start: 20110408, end: 20110412
  9. FOLIC ACID [Suspect]
     Dosage: 5 MG, UNK
     Route: 048
     Dates: start: 20110307, end: 20110429
  10. LOVENOX [Concomitant]
     Dosage: 4000 IU, UNK
     Route: 058
     Dates: start: 20110201, end: 20110620
  11. NEXIUM [Concomitant]
     Dosage: 20 MG, QD
     Dates: start: 20110206
  12. FERROUS SULFATE TAB [Concomitant]
     Dosage: UNK
     Dates: start: 20110209
  13. BILTRICIDE [Suspect]
     Dosage: 4 DF, ONCE
     Route: 048
     Dates: start: 20110421, end: 20110421
  14. ABACAVIR SULFATE AND LAMIVUDINE [Suspect]
     Dosage: 1 DF, QD
     Route: 048
     Dates: start: 20110304, end: 20110407
  15. VITAMIN B6 [Concomitant]
     Dosage: 1 DF, UNK
  16. FOLINORAL [Concomitant]
     Dosage: 25 MG, QD
     Dates: start: 20110202, end: 20110503
  17. UVEDOSE [Concomitant]
     Dosage: 1 AMPULLA EVERY 14 DAYS
     Dates: end: 20110407
  18. ACETAMINOPHEN [Concomitant]
     Indication: PAIN
     Dosage: 1 G, PRN
     Dates: start: 20110201
  19. NICARDIPINE HCL [Concomitant]
     Dosage: 50 MG, BID
     Dates: start: 20110202, end: 20110517
  20. RAMIPRIL [Concomitant]
     Dosage: 1.25 MG, QD
     Dates: start: 20110203
  21. NORVIR [Concomitant]
     Dosage: 100 MG, QD
  22. ATOVAQUONE [Concomitant]
     Dosage: 750 MG, BID
     Dates: start: 20110407
  23. EPIVIR [Concomitant]
     Dosage: 1 TABLET/D
     Dates: start: 20110408

REACTIONS (1)
  - EOSINOPHILIA [None]
